FAERS Safety Report 4294726-0 (Version None)
Quarter: 2004Q1

REPORT INFORMATION
  Report Type: 
  Country: None (occurrence: None)
  Receive Date: 20040213
  Receipt Date: 20040206
  Transmission Date: 20041129
  Serious: Yes (Life-Threatening, Hospitalization)
  Sender: FDA-Public Use
  Company Number: IT-ROCHE-358263

PATIENT
  Age: 76 Year
  Sex: Female

DRUGS (1)
  1. XELODA [Suspect]
     Indication: BREAST CANCER
     Dosage: GIVEN FOR FOURTEEN DAYS ON A TWENTY ONE DAY CYCLE.
     Route: 048
     Dates: start: 20030915, end: 20031119

REACTIONS (3)
  - ACUTE MYOCARDIAL INFARCTION [None]
  - DYSPNOEA [None]
  - PALPITATIONS [None]
